FAERS Safety Report 11865940 (Version 1)
Quarter: 2015Q4

REPORT INFORMATION
  Report Type: Spontaneous
  Country: US (occurrence: US)
  Receive Date: 20151223
  Receipt Date: 20151223
  Transmission Date: 20160305
  Serious: Yes (Death, Hospitalization, Disabling)
  Sender: FDA-Public Use
  Company Number: US-TEVA-619903USA

PATIENT
  Age: 74 Year
  Sex: Male

DRUGS (1)
  1. AMIODARONE [Suspect]
     Active Substance: AMIODARONE
     Indication: ATRIAL FIBRILLATION

REACTIONS (19)
  - Pulmonary fibrosis [Fatal]
  - Nervousness [Unknown]
  - Balance disorder [Unknown]
  - Lung disorder [Fatal]
  - Heart rate increased [Unknown]
  - Dyspnoea [Unknown]
  - Fatigue [Unknown]
  - Depression [Unknown]
  - Chest pain [Unknown]
  - Product use issue [Unknown]
  - Wheezing [Unknown]
  - Cough [Unknown]
  - Dyspnoea [Unknown]
  - Asthenia [Unknown]
  - Restlessness [Unknown]
  - Toxicity to various agents [Unknown]
  - Lung disorder [Unknown]
  - Irritability [Unknown]
  - Disturbance in attention [Unknown]

NARRATIVE: CASE EVENT DATE: 201311
